FAERS Safety Report 10101611 (Version 1)
Quarter: 2014Q2

REPORT INFORMATION
  Report Type: Spontaneous
  Country: US (occurrence: US)
  Receive Date: 20140424
  Receipt Date: 20140424
  Transmission Date: 20141212
  Serious: Yes (Hospitalization)
  Sender: FDA-Public Use
  Company Number: 2014SP002303

PATIENT
  Age: 11 Year
  Sex: Female

DRUGS (8)
  1. VANCOMYCIN [Suspect]
     Indication: PRODUCT USED FOR UNKNOWN INDICATION
     Route: 042
  2. FLOLAN [Suspect]
     Indication: COR PULMONALE CHRONIC
     Dates: start: 20131107
  3. WARFARIN SODIUM [Concomitant]
  4. FLOVENT [Concomitant]
  5. AMOXICILLIN TRIHYDRATE [Concomitant]
  6. FUROSEMIDE [Concomitant]
  7. DIGOXIN [Concomitant]
  8. SALBUTAMOL [Concomitant]

REACTIONS (19)
  - Pulmonary haemorrhage [Recovered/Resolved]
  - Haemoptysis [Recovered/Resolved]
  - Haematemesis [Recovered/Resolved]
  - Gastrooesophageal reflux disease [Unknown]
  - Nausea [Unknown]
  - Abdominal pain [Unknown]
  - Dysgeusia [Unknown]
  - Sepsis [Unknown]
  - Respiratory tract infection [Unknown]
  - Influenza [Unknown]
  - Asthma [Not Recovered/Not Resolved]
  - Dyspnoea [Recovering/Resolving]
  - Rhinitis allergic [Unknown]
  - Nasopharyngitis [Unknown]
  - Drug hypersensitivity [Not Recovered/Not Resolved]
  - Dizziness [Recovering/Resolving]
  - Drug eruption [Not Recovered/Not Resolved]
  - Red man syndrome [Unknown]
  - Hypersomnia [Unknown]
